FAERS Safety Report 17818926 (Version 1)
Quarter: 2020Q2

REPORT INFORMATION
  Report Type: Spontaneous
  Country: KR (occurrence: KR)
  Receive Date: 20200522
  Receipt Date: 20200522
  Transmission Date: 20200714
  Serious: Yes (Hospitalization, Other)
  Sender: FDA-Public Use
  Company Number: KR-BAXTER-2020BAX010305

PATIENT
  Age: 54 Year
  Sex: Male

DRUGS (3)
  1. LEFLOX [Suspect]
     Active Substance: LEVOFLOXACIN
     Indication: CORONAVIRUS INFECTION
     Route: 042
     Dates: start: 20200228, end: 20200302
  2. CEFTRIAXONE. [Suspect]
     Active Substance: CEFTRIAXONE
     Indication: COVID-19
     Route: 042
     Dates: start: 20200226, end: 20200302
  3. LOPINAVIR/RITONAVIR [Suspect]
     Active Substance: LOPINAVIR\RITONAVIR
     Indication: PYREXIA
     Dosage: LOPINAVIR/RITONAVIR 400/100 MG PO TWICE
     Route: 048
     Dates: start: 20200226, end: 20200302

REACTIONS (3)
  - Petechiae [Recovering/Resolving]
  - Epistaxis [Recovering/Resolving]
  - Thrombocytopenia [Recovered/Resolved]

NARRATIVE: CASE EVENT DATE: 20200302
